FAERS Safety Report 21870765 (Version 1)
Quarter: 2023Q1

REPORT INFORMATION
  Report Type: Report from Study
  Country: PA (occurrence: PA)
  Receive Date: 20230117
  Receipt Date: 20230117
  Transmission Date: 20230418
  Serious: Yes (Other)
  Sender: FDA-Public Use
  Company Number: PA-002147023-NVSC2023PA009531

PATIENT
  Age: 71 Year
  Sex: Male

DRUGS (2)
  1. EXFORGE [Suspect]
     Active Substance: AMLODIPINE BESYLATE\VALSARTAN
     Indication: Hypertension
     Dosage: 5/320 MG, QD
     Route: 048
     Dates: start: 202206, end: 202212
  2. EXFORGE [Suspect]
     Active Substance: AMLODIPINE BESYLATE\VALSARTAN
     Dosage: 10/320 MG, QD (STARTED FROM 2023)
     Route: 048

REACTIONS (3)
  - Myasthenia gravis [Recovering/Resolving]
  - Muscular weakness [Unknown]
  - Drug ineffective [Recovering/Resolving]

NARRATIVE: CASE EVENT DATE: 20221201
